FAERS Safety Report 7790637-4 (Version None)
Quarter: 2011Q3

REPORT INFORMATION
  Report Type: 
  Country: None (occurrence: None)
  Receive Date: 20110930
  Receipt Date: 20110929
  Transmission Date: 20111222
  Serious: Yes (Death, Hospitalization, Other)
  Sender: FDA-Public Use
  Company Number: DK-ABBOTT-11P-044-0720550-00

PATIENT
  Sex: Male
  Weight: 85 kg

DRUGS (4)
  1. EBETREX [Concomitant]
     Indication: PSORIATIC ARTHROPATHY
     Dates: start: 20100927
  2. METHOTREXATE [Concomitant]
     Indication: PRODUCT USED FOR UNKNOWN INDICATION
     Dosage: UNKNOWN MAH
     Route: 048
     Dates: start: 20070425, end: 20070717
  3. METHOTREXATE [Concomitant]
     Route: 048
     Dates: start: 20071008, end: 20110103
  4. HUMIRA [Suspect]
     Indication: PSORIATIC ARTHROPATHY
     Dates: start: 20070425, end: 20090629

REACTIONS (15)
  - SEPTIC SHOCK [None]
  - ABDOMINAL PAIN [None]
  - HAEMATEMESIS [None]
  - NAUSEA [None]
  - CHOLANGITIS [None]
  - SEPSIS [None]
  - ABDOMINAL DISTENSION [None]
  - HEPATIC FAILURE [None]
  - RENAL FAILURE [None]
  - SKIN DISCOLOURATION [None]
  - ABDOMINAL TENDERNESS [None]
  - HEPATIC FUNCTION ABNORMAL [None]
  - LACTIC ACIDOSIS [None]
  - GASTROINTESTINAL HYPOMOTILITY [None]
  - VENTRICULAR FIBRILLATION [None]
